FAERS Safety Report 24675409 (Version 1)
Quarter: 2024Q4

REPORT INFORMATION
  Report Type: Spontaneous
  Country: JP (occurrence: JP)
  Receive Date: 20241128
  Receipt Date: 20241128
  Transmission Date: 20250115
  Serious: Yes (Death)
  Sender: SANOFI AVENTIS
  Company Number: JP-SA-2024SA347895

PATIENT
  Age: 66 Year

DRUGS (1)
  1. REZUROCK [Suspect]
     Active Substance: BELUMOSUDIL
     Dosage: UNK
     Route: 048

REACTIONS (2)
  - Infection [Fatal]
  - Drug ineffective [Unknown]
